FAERS Safety Report 21679065 (Version 1)
Quarter: 2022Q4

REPORT INFORMATION
  Report Type: Spontaneous
  Country: GB (occurrence: GB)
  Receive Date: 20221204
  Receipt Date: 20221204
  Transmission Date: 20230113
  Serious: Yes (Other)
  Sender: FDA-Public Use
  Company Number: GB-MHRA-MED-202211161031560410-MTGKQ

PATIENT
  Age: 72 Year
  Sex: Male

DRUGS (9)
  1. ONDANSETRON [Suspect]
     Active Substance: ONDANSETRON
     Indication: Colon cancer
     Dosage: ONDANSETRON 8 MG IN 4ML AMP - DILUTE 8MG (4ML) ONDANSETRON IN 50ML SODIUM CHLORIDE 0.9% AND GIVE A..
     Route: 065
  2. SODIUM CHLORIDE [Suspect]
     Active Substance: SODIUM CHLORIDE
     Indication: Medication dilution
     Dosage: 50 ML TO DILUTE ONDANSETRON
     Route: 065
  3. ATROPINE [Concomitant]
     Active Substance: ATROPINE
     Route: 065
  4. CHLORPHENIRAMINE [Concomitant]
     Active Substance: CHLORPHENIRAMINE
     Route: 065
  5. DEXAMETHASONE [Concomitant]
     Active Substance: DEXAMETHASONE
     Route: 065
  6. EMEND [Concomitant]
     Active Substance: APREPITANT
     Route: 065
  7. SODIUM CHLORIDE [Concomitant]
     Active Substance: SODIUM CHLORIDE
     Route: 065
  8. DEXTROSE [Concomitant]
     Active Substance: DEXTROSE
     Route: 065
  9. PEGFILGRASTIM [Concomitant]
     Active Substance: PEGFILGRASTIM
     Route: 065

REACTIONS (3)
  - Fatigue [Unknown]
  - Ageusia [Unknown]
  - Diarrhoea [Unknown]

NARRATIVE: CASE EVENT DATE: 20221114
